FAERS Safety Report 11988697 (Version 1)
Quarter: 2016Q1

REPORT INFORMATION
  Report Type: Report from Study
  Country: BR (occurrence: BR)
  Receive Date: 20160202
  Receipt Date: 20160202
  Transmission Date: 20160526
  Serious: Yes (Hospitalization)
  Sender: FDA-Public Use
  Company Number: PHHY2016BR011794

PATIENT
  Sex: Female
  Weight: 79.9 kg

DRUGS (2)
  1. DIOVAN [Suspect]
     Active Substance: VALSARTAN
     Indication: HYPERTENSION
     Dosage: 160 MG, QD, IN THE MORNING
     Route: 048
  2. DIOVAN [Suspect]
     Active Substance: VALSARTAN
     Dosage: 320 MG, QD, IN THE MORNING
     Route: 048
     Dates: start: 201512

REACTIONS (5)
  - Pain [Not Recovered/Not Resolved]
  - Sepsis [Recovered/Resolved]
  - Weight decreased [Unknown]
  - Device related infection [Recovered/Resolved]
  - Blood pressure inadequately controlled [Unknown]
